FAERS Safety Report 15590405 (Version 1)
Quarter: 2018Q4

REPORT INFORMATION
  Report Type: Spontaneous
  Country: FR (occurrence: FR)
  Receive Date: 20181106
  Receipt Date: 20181106
  Transmission Date: 20190205
  Serious: Yes (Hospitalization)
  Sender: FDA-Public Use
  Company Number: FR-SPECTRUM PHARMACEUTICALS, INC.-18-Z-FR-00394

PATIENT

DRUGS (1)
  1. ZEVALIN [Suspect]
     Active Substance: IBRITUMOMAB TIUXETAN
     Indication: LYMPHOMA
     Dosage: 1212 MBQ, SINGLE
     Route: 042
     Dates: start: 20141121, end: 20141121

REACTIONS (1)
  - Squamous cell carcinoma of skin [Not Recovered/Not Resolved]

NARRATIVE: CASE EVENT DATE: 201808
